FAERS Safety Report 6830235-X (Version None)
Quarter: 2010Q3

REPORT INFORMATION
  Report Type: 
  Country: None (occurrence: None)
  Receive Date: 20100712
  Receipt Date: 20100629
  Transmission Date: 20110219
  Serious: Yes (Hospitalization, Other)
  Sender: FDA-Public Use
  Company Number: US-BIOGENIDEC-2009BI038379

PATIENT
  Age: 46 Year
  Sex: Female
  Weight: 81 kg

DRUGS (7)
  1. TYSABRI [Suspect]
     Indication: MULTIPLE SCLEROSIS
     Route: 042
     Dates: start: 20060919
  2. ADDERALL 10 [Concomitant]
  3. EFFEXOR [Concomitant]
  4. LAMICTAL [Concomitant]
  5. LORTAB [Concomitant]
  6. SOMA [Concomitant]
     Route: 048
  7. VALIUM [Concomitant]
     Route: 048

REACTIONS (8)
  - ABASIA [None]
  - BLISTER [None]
  - CELLULITIS [None]
  - DRUG DELIVERY DEVICE IMPLANTATION [None]
  - LIVER FUNCTION TEST ABNORMAL [None]
  - PNEUMONIA [None]
  - THROMBOSIS [None]
  - URINARY TRACT INFECTION [None]
